FAERS Safety Report 7715727-3 (Version None)
Quarter: 2011Q3

REPORT INFORMATION
  Report Type: 
  Country: None (occurrence: None)
  Receive Date: 20110829
  Receipt Date: 20110824
  Transmission Date: 20111222
  Serious: Yes (Hospitalization)
  Sender: FDA-Public Use
  Company Number: FR-PFIZER INC-2011000110

PATIENT
  Age: 21 Year
  Sex: Male

DRUGS (8)
  1. LEVOTHYROXINE SODIUM [Concomitant]
     Dosage: 175 UG, 1X/DAY
  2. METOPIRONE [Suspect]
     Dosage: 250 MG, 9X/DAY
     Dates: start: 20101118, end: 20101213
  3. HYDROCORTISONE [Concomitant]
     Dosage: 20 MG, 1X/DAY
     Route: 048
     Dates: start: 20101101
  4. LEVOTHYROXINE SODIUM [Concomitant]
     Dosage: 150 UG, 1X/DAY
     Route: 048
     Dates: start: 20101116
  5. ALDACTONE [Suspect]
     Indication: HYPERTENSION
     Dosage: 75 MG, 1X/DAY
     Route: 048
     Dates: start: 20101118
  6. METOPIRONE [Suspect]
     Dosage: 250 MG, 6X/DAY
     Route: 048
     Dates: start: 20101116
  7. LYSODREN [Suspect]
     Dosage: 1 G, 2X/DAY
     Route: 048
     Dates: start: 20101006
  8. POTASSIUM CHLORIDE [Concomitant]
     Dosage: UNK
     Dates: start: 20101116

REACTIONS (1)
  - HEPATITIS ACUTE [None]
